FAERS Safety Report 21711814 (Version 2)
Quarter: 2023Q1

REPORT INFORMATION
  Report Type: Spontaneous
  Country: TR (occurrence: TR)
  Receive Date: 20221212
  Receipt Date: 20230111
  Transmission Date: 20230417
  Serious: Yes (Death, Other)
  Sender: FDA-Public Use
  Company Number: TR-GILEAD-2022-0607585

PATIENT
  Age: 27 Year
  Sex: Female

DRUGS (2)
  1. AMPHOTERICIN B [Suspect]
     Active Substance: AMPHOTERICIN B
     Indication: Cryptococcosis
     Dosage: UNK UNK, UNKNOWN FREQ.
     Route: 065
  2. FLUCONAZOLE [Concomitant]
     Active Substance: FLUCONAZOLE
     Indication: Product used for unknown indication
     Dosage: UNK UNK, UNKNOWN FREQ.
     Route: 065

REACTIONS (1)
  - Death [Fatal]
